FAERS Safety Report 6837034-3 (Version None)
Quarter: 2010Q3

REPORT INFORMATION
  Report Type: 
  Country: None (occurrence: None)
  Receive Date: 20100708
  Receipt Date: 20100628
  Transmission Date: 20110219
  Serious: Yes (Other)
  Sender: FDA-Public Use
  Company Number: 230322J10USA

PATIENT
  Age: 69 Year
  Sex: Female

DRUGS (3)
  1. REBIF [Suspect]
     Indication: MULTIPLE SCLEROSIS
     Dosage: 44 MCG, 3 IN 1 WK, SUBCUTANEOUS
     Route: 058
     Dates: start: 20090917, end: 20100101
  2. REBIF [Suspect]
     Indication: MULTIPLE SCLEROSIS
     Dosage: 44 MCG, 3 IN 1 WK, SUBCUTANEOUS
     Route: 058
     Dates: start: 20100101
  3. H1NI VACCINE (INFLUENZA VIRUS VACCINE MONOVALENT) [Suspect]
     Indication: INFLUENZA IMMUNISATION
     Dosage: ONCE
     Dates: start: 20091210

REACTIONS (7)
  - COUGH [None]
  - DRUG HYPERSENSITIVITY [None]
  - INJECTION SITE PAIN [None]
  - INJECTION SITE REACTION [None]
  - LUNG INFECTION [None]
  - NAUSEA [None]
  - PAIN [None]
